FAERS Safety Report 4616119-6 (Version None)
Quarter: 2005Q1

REPORT INFORMATION
  Report Type: 
  Country: None (occurrence: None)
  Receive Date: 20050323
  Receipt Date: 20050310
  Transmission Date: 20050727
  Serious: Yes (Hospitalization)
  Sender: FDA-Public Use
  Company Number: US-JNJFOC-20041203739

PATIENT
  Sex: Female
  Weight: 56.7 kg

DRUGS (21)
  1. TOPAMAX [Suspect]
     Route: 049
  2. TOPAMAX [Suspect]
     Indication: MIGRAINE PROPHYLAXIS
     Route: 049
  3. VERAPAMIL [Concomitant]
     Indication: MIGRAINE
  4. FOLIC ACID [Concomitant]
     Indication: COLECTOMY
  5. ORAL CONTRACEPTIVE [Concomitant]
  6. PERCOCET [Concomitant]
  7. PERCOCET [Concomitant]
     Dosage: AS NEEDED
  8. CIPROFLOXACIN HCL [Concomitant]
  9. IRON SUPPLEMENT [Concomitant]
  10. MULTI-VITAMIN [Concomitant]
  11. MULTI-VITAMIN [Concomitant]
  12. MULTI-VITAMIN [Concomitant]
  13. MULTI-VITAMIN [Concomitant]
  14. MULTI-VITAMIN [Concomitant]
  15. MULTI-VITAMIN [Concomitant]
  16. MULTI-VITAMIN [Concomitant]
  17. MULTI-VITAMIN [Concomitant]
  18. PREVACID [Concomitant]
  19. ZYRTEC [Concomitant]
     Route: 065
  20. ENBREL [Concomitant]
     Route: 050
  21. COMPAZINE [Concomitant]
     Route: 065

REACTIONS (13)
  - BLOOD ALKALINE PHOSPHATASE INCREASED [None]
  - BLOOD CHLORIDE DECREASED [None]
  - BLOOD POTASSIUM INCREASED [None]
  - BLOOD PRESSURE DECREASED [None]
  - BLOOD SODIUM INCREASED [None]
  - CONFUSIONAL STATE [None]
  - DEHYDRATION [None]
  - FATIGUE [None]
  - HEART RATE INCREASED [None]
  - RASH ERYTHEMATOUS [None]
  - RENAL FAILURE ACUTE [None]
  - THROMBOCYTHAEMIA [None]
  - WEIGHT DECREASED [None]
